FAERS Safety Report 4558732-0 (Version None)
Quarter: 2005Q1

REPORT INFORMATION
  Report Type: 
  Country: None (occurrence: None)
  Receive Date: 20050119
  Receipt Date: 20050107
  Transmission Date: 20050727
  Serious: Yes (Death, Hospitalization)
  Sender: FDA-Public Use
  Company Number: 001-0981-M0006839

PATIENT
  Age: 77 Year
  Sex: Male
  Weight: 87.5442 kg

DRUGS (10)
  1. ATORVASTATIN (ATORVASTATIN) [Suspect]
     Indication: CORONARY ARTERY DISEASE
     Dosage: SEE IMAGE, ORAL
     Route: 048
     Dates: start: 19990416, end: 19990614
  2. ATORVASTATIN (ATORVASTATIN) [Suspect]
     Indication: CORONARY ARTERY DISEASE
     Dosage: SEE IMAGE, ORAL
     Route: 048
     Dates: start: 19990615, end: 20000910
  3. ATENOLOL [Concomitant]
  4. POTASSIUM CHLORIDE [Concomitant]
  5. FUROSEMIDE [Concomitant]
  6. ASPIRIN [Concomitant]
  7. LISINOPRIL [Concomitant]
  8. NAPROXEN [Concomitant]
  9. OMEPRAZOLE [Concomitant]
  10. TOCOPHEROL (TOCOPHEROL) [Concomitant]

REACTIONS (5)
  - ACUTE RESPIRATORY DISTRESS SYNDROME [None]
  - PNEUMONIA [None]
  - POLYARTHRITIS [None]
  - PULMONARY OEDEMA [None]
  - RHEUMATOID FACTOR INCREASED [None]
